FAERS Safety Report 7190730-3 (Version None)
Quarter: 2010Q4

REPORT INFORMATION
  Report Type: 
  Country: None (occurrence: None)
  Receive Date: 20101221
  Receipt Date: 20101221
  Transmission Date: 20110411
  Serious: Yes (Life-Threatening, Hospitalization)
  Sender: FDA-Public Use
  Company Number: None

PATIENT
  Age: 23 Year
  Sex: Male
  Weight: 74.8435 kg

DRUGS (1)
  1. REMICADE [Suspect]
     Indication: COLITIS ULCERATIVE
     Dosage: EVERY 3 MONTHS IV DRIP
     Route: 041
     Dates: start: 20080115, end: 20080331

REACTIONS (4)
  - FEELING ABNORMAL [None]
  - MENTAL DISORDER [None]
  - MIDDLE INSOMNIA [None]
  - SUICIDAL IDEATION [None]
